FAERS Safety Report 9053500 (Version 1)
Quarter: 2013Q1

REPORT INFORMATION
  Report Type: Spontaneous
  Country: GB (occurrence: GB)
  Receive Date: 20130208
  Receipt Date: 20130208
  Transmission Date: 20140127
  Serious: Yes (Hospitalization)
  Sender: FDA-Public Use
  Company Number: GB-ABBOTT-13P-167-1044121-00

PATIENT
  Age: 71 Year
  Sex: Male
  Weight: 76 kg

DRUGS (10)
  1. BIAXIN [Suspect]
     Indication: UPPER RESPIRATORY TRACT INFECTION
     Route: 048
     Dates: start: 20121224, end: 20121228
  2. TACROLIMUS [Interacting]
     Indication: RENAL TRANSPLANT
     Route: 048
     Dates: start: 201208
  3. TACROLIMUS [Interacting]
     Dosage: LOWER DOSE
  4. MYCOPHENOLATE SODIUM [Concomitant]
     Indication: PROPHYLAXIS AGAINST TRANSPLANT REJECTION
  5. PREDNISOLONE [Concomitant]
     Indication: PROPHYLAXIS AGAINST TRANSPLANT REJECTION
  6. NIFEDIPINE [Concomitant]
     Indication: PRODUCT USED FOR UNKNOWN INDICATION
  7. TRIMETHOPRIM [Concomitant]
     Indication: PRODUCT USED FOR UNKNOWN INDICATION
  8. OMEPRAZOLE [Concomitant]
     Indication: PRODUCT USED FOR UNKNOWN INDICATION
  9. ASPIRIN [Concomitant]
     Indication: PRODUCT USED FOR UNKNOWN INDICATION
  10. ATORVASTATIN [Concomitant]
     Indication: PRODUCT USED FOR UNKNOWN INDICATION
     Dosage: AT NIGHT

REACTIONS (5)
  - Nephropathy toxic [Unknown]
  - Drug interaction [Unknown]
  - Blood creatinine increased [Recovered/Resolved]
  - Drug level increased [Recovered/Resolved]
  - Medication error [Unknown]
